FAERS Safety Report 5867526-5 (Version None)
Quarter: 2008Q3

REPORT INFORMATION
  Report Type: 
  Country: None (occurrence: None)
  Receive Date: 20080902
  Receipt Date: 20070905
  Transmission Date: 20090109
  Serious: No
  Sender: FDA-Public Use
  Company Number: US-ABBOTT-07P-163-0416428-00

PATIENT
  Age: 42 Year
  Sex: Female
  Weight: 50.848 kg

DRUGS (5)
  1. DEPAKOTE ER [Suspect]
     Indication: OVERDOSE
     Route: 048
     Dates: start: 20070902, end: 20070902
  2. DEPAKOTE ER [Suspect]
     Indication: BIPOLAR DISORDER
     Route: 048
     Dates: start: 20070701
  3. PAROXETINE HCL [Concomitant]
     Indication: DRUG USE FOR UNKNOWN INDICATION
  4. METHYLPHENIDATE HCL [Concomitant]
     Indication: DRUG USE FOR UNKNOWN INDICATION
  5. DEXMETHYLPHENIDATE HYDROCHLORIDE [Concomitant]
     Indication: DRUG USE FOR UNKNOWN INDICATION

REACTIONS (5)
  - COLD SWEAT [None]
  - DIZZINESS [None]
  - LETHARGY [None]
  - NAUSEA [None]
  - OVERDOSE [None]
